FAERS Safety Report 13510182 (Version 1)
Quarter: 2017Q2

REPORT INFORMATION
  Report Type: Spontaneous
  Country: US (occurrence: US)
  Receive Date: 20170503
  Receipt Date: 20170503
  Transmission Date: 20170830
  Serious: Yes (Other)
  Sender: FDA-Public Use
  Company Number: US-PFIZER INC-2014286195

PATIENT
  Age: 24 Year
  Sex: Female

DRUGS (1)
  1. CHANTIX [Suspect]
     Active Substance: VARENICLINE TARTRATE
     Dosage: UNK

REACTIONS (5)
  - Homicidal ideation [Unknown]
  - Suicidal ideation [Unknown]
  - Physical assault [Unknown]
  - Sleep disorder [Unknown]
  - Suicide attempt [Unknown]
